FAERS Safety Report 4718671-9 (Version None)
Quarter: 2005Q3

REPORT INFORMATION
  Report Type: 
  Country: None (occurrence: None)
  Receive Date: 20050719
  Receipt Date: 20050706
  Transmission Date: 20060218
  Serious: Yes (Other)
  Sender: FDA-Public Use
  Company Number: 2005097240

PATIENT
  Sex: Male
  Weight: 87.5442 kg

DRUGS (5)
  1. CELEBREX [Suspect]
     Indication: ARTHRALGIA
     Dosage: (200 MG, 1 D), ORAL
     Route: 048
  2. BEXTRA [Suspect]
     Indication: ILL-DEFINED DISORDER
  3. TYLENOL PM (DIPHENHYDRAMINE, PARACETAMOL) [Concomitant]
  4. AMBIEN [Concomitant]
  5. ASPIRIN [Concomitant]

REACTIONS (1)
  - RASH GENERALISED [None]
